FAERS Safety Report 7984433-2 (Version None)
Quarter: 2011Q4

REPORT INFORMATION
  Report Type: 
  Country: None (occurrence: None)
  Receive Date: 20111216
  Receipt Date: 20111205
  Transmission Date: 20120403
  Serious: Yes (Hospitalization, Other)
  Sender: FDA-Public Use
  Company Number: BE-ELI_LILLY_AND_COMPANY-BE201112001570

PATIENT
  Sex: Female

DRUGS (2)
  1. FORTEO [Suspect]
     Dosage: UNK
     Dates: start: 20111027
  2. SINTROM [Concomitant]

REACTIONS (5)
  - FALL [None]
  - ANAEMIA [None]
  - RENAL FAILURE [None]
  - HAEMATOMA [None]
  - FLUID RETENTION [None]
